FAERS Safety Report 8414672-8 (Version None)
Quarter: 2012Q2

REPORT INFORMATION
  Report Type: 
  Country: None (occurrence: None)
  Receive Date: 20120605
  Receipt Date: 20120601
  Transmission Date: 20120825
  Serious: Yes (Hospitalization)
  Sender: FDA-Public Use
  Company Number: US-GILEAD-2012-0055300

PATIENT
  Sex: Female

DRUGS (2)
  1. LETAIRIS [Suspect]
     Indication: PRODUCT USED FOR UNKNOWN INDICATION
     Dosage: 5 MG, UNK
     Route: 048
     Dates: start: 20080731
  2. OXYGEN [Concomitant]

REACTIONS (10)
  - OESOPHAGEAL DISORDER [None]
  - DIABETES MELLITUS [None]
  - INTESTINAL PROLAPSE [None]
  - DYSPNOEA [None]
  - ABDOMINAL DISCOMFORT [None]
  - SCLERODERMA [None]
  - UNEVALUABLE EVENT [None]
  - IMMUNE SYSTEM DISORDER [None]
  - SMALL INTESTINAL OBSTRUCTION [None]
  - PNEUMONIA [None]
